FAERS Safety Report 7206397-1 (Version None)
Quarter: 2011Q1

REPORT INFORMATION
  Report Type: 
  Country: None (occurrence: None)
  Receive Date: 20110103
  Receipt Date: 20110103
  Transmission Date: 20110831
  Serious: Yes (Hospitalization)
  Sender: FDA-Public Use
  Company Number: PHHO2007DE05818

PATIENT
  Sex: Male
  Weight: 81 kg

DRUGS (1)
  1. CERTICAN [Suspect]
     Indication: CONGENITAL CYSTIC KIDNEY DISEASE
     Dosage: 2.5 MG, BID
     Route: 048
     Dates: start: 20070206, end: 20070327

REACTIONS (5)
  - MYALGIA [None]
  - RHABDOMYOLYSIS [None]
  - ASTHENIA [None]
  - APHTHOUS STOMATITIS [None]
  - BLOOD CREATINE PHOSPHOKINASE INCREASED [None]
